FAERS Safety Report 7091040-5 (Version None)
Quarter: 2010Q4

REPORT INFORMATION
  Report Type: 
  Country: None (occurrence: None)
  Receive Date: 20101013
  Receipt Date: 20100616
  Transmission Date: 20110411
  Serious: No
  Sender: FDA-Public Use
  Company Number: WAES 1006USA02732

PATIENT
  Sex: Male

DRUGS (3)
  1. ISENTRESS [Suspect]
     Indication: HIV INFECTION
     Dosage: 400 MG/BID/PO
     Route: 048
     Dates: start: 20100201, end: 20100601
  2. INTELENCE [Concomitant]
  3. SELZENTRY [Concomitant]

REACTIONS (3)
  - HEPATOTOXICITY [None]
  - HYPOXIA [None]
  - TRANSAMINASES INCREASED [None]
